FAERS Safety Report 4646543-7 (Version None)
Quarter: 2005Q2

REPORT INFORMATION
  Report Type: 
  Country: None (occurrence: None)
  Receive Date: 20050425
  Receipt Date: 20040412
  Transmission Date: 20051028
  Serious: Yes (Hospitalization)
  Sender: FDA-Public Use
  Company Number: 05P-013-0294542-00

PATIENT
  Age: 80 Year
  Sex: Female

DRUGS (16)
  1. ZEMPLAR INJECTION (PARICALCITOL INJECTION) (PARICALCITOL)(PARACALCITOL [Suspect]
     Indication: HYPERPARATHYROIDISM SECONDARY
     Dosage: INJECTION
     Dates: start: 20050228
  2. TRAMADOL HCL [Concomitant]
  3. PARACETAMOL [Concomitant]
  4. RANITIDINE [Concomitant]
  5. DUOVENT [Concomitant]
  6. LORMETAZEPAM [Concomitant]
  7. GABAPEATINUM [Concomitant]
  8. SEVELAMER [Concomitant]
  9. TRAZODONE HYDROCHLORIDE [Concomitant]
  10. DOMPERIDONE [Concomitant]
  11. EPOGEN [Concomitant]
  12. METYLDIGOXINE [Concomitant]
  13. NEUROBION FOR INJECTION [Concomitant]
  14. ASCORBINE ACID [Concomitant]
  15. LEVOFLOXACIN [Concomitant]
  16. ITRACOMAZOLE [Concomitant]

REACTIONS (5)
  - DIARRHOEA INFECTIOUS [None]
  - ENTERITIS INFECTIOUS [None]
  - GASTROENTERITIS VIRAL [None]
  - GASTROINTESTINAL FUNGAL INFECTION [None]
  - RESPIRATORY TRACT INFECTION [None]
